FAERS Safety Report 8912328 (Version 1)
Quarter: 2012Q4

REPORT INFORMATION
  Report Type: 
  Country: US (occurrence: US)
  Receive Date: 20121116
  Receipt Date: 20121116
  Transmission Date: 20130627
  Serious: Yes (Other)
  Sender: FDA-Public Use
  Company Number: US-COVIDIEN/TYCO HEALTHCARE/MALLINCKRODT-T201203891

PATIENT
  Age: 41 Year
  Sex: Female

DRUGS (13)
  1. OXYCODONE [Suspect]
     Indication: PAIN
     Dosage: 30 mg, tid
  2. OXYCODONE [Suspect]
     Dosage: 30 mg, 12 tabs a day
  3. FENTANYL TRANSDERMAL SYSTEM [Suspect]
     Indication: PAIN
     Dosage: 75 ug/hr, UNK
     Dates: start: 20121105
  4. FENTANYL TRANSDERMAL SYSTEM [Suspect]
     Dosage: 50 ug/hr, UNK
  5. SOMA [Concomitant]
     Dosage: UNK
  6. XANAX [Concomitant]
     Dosage: UNK
  7. VALIUM                             /00017001/ [Concomitant]
     Dosage: UNK
  8. VIVELLE                            /00045401/ [Concomitant]
     Indication: HORMONE REPLACEMENT THERAPY
     Dosage: UNK
  9. AMBIEN [Concomitant]
     Indication: INSOMNIA
     Dosage: prn
  10. LIOCINE [Concomitant]
     Indication: NECK PAIN
     Dosage: Cream
  11. HYDROXYZINE [Concomitant]
     Dosage: UNK
  12. TEGRETOL [Concomitant]
     Indication: CONVULSION
     Dosage: UNK
  13. INHALER [Concomitant]
     Dosage: UNK

REACTIONS (6)
  - Pneumonia [Not Recovered/Not Resolved]
  - Blood pressure decreased [Recovered/Resolved]
  - Yellow skin [Recovering/Resolving]
  - Dyspnoea [Unknown]
  - Dry mouth [Unknown]
  - Pain [Unknown]
